FAERS Safety Report 4685867-4 (Version None)
Quarter: 2005Q2

REPORT INFORMATION
  Report Type: 
  Country: None (occurrence: None)
  Receive Date: 20050607
  Receipt Date: 20050607
  Transmission Date: 20051028
  Serious: Yes (Disabling)
  Sender: FDA-Public Use
  Company Number: None

PATIENT
  Age: 63 Year
  Sex: Female
  Weight: 72.5755 kg

DRUGS (5)
  1. ZICAM CONCENTRATED COUGH MIST W/DEXTROMETHORPAN ORAL COUGH SUPPRESSANT [Suspect]
     Indication: COUGH
     Dosage: SEE B5
  2. NOSTRILLA (OXYMETAZOLINE) [Concomitant]
  3. MULTI-VITAMIN [Concomitant]
  4. ROBITUSSIN [Concomitant]
  5. CORTISLIM [Concomitant]

REACTIONS (5)
  - AGEUSIA [None]
  - ANOSMIA [None]
  - BRONCHITIS [None]
  - MALAISE [None]
  - RHINITIS [None]
